FAERS Safety Report 16376717 (Version 1)
Quarter: 2019Q3

REPORT INFORMATION
  Report Type: Spontaneous
  Country: US (occurrence: US)
  Receive Date: 20190530
  Receipt Date: 20190530
  Transmission Date: 20191004
  Serious: Yes (Disabling)
  Sender: FDA-Public Use
  Company Number: None

PATIENT
  Age: 36 Year
  Sex: Female
  Weight: 99 kg

DRUGS (6)
  1. ULTRA CBD EXTRACT [Concomitant]
  2. CIPRO [Suspect]
     Active Substance: CIPROFLOXACIN HYDROCHLORIDE
     Indication: BACTERIAL INFECTION
     Dosage: ?          QUANTITY:1 TABLET(S);?
     Route: 048
     Dates: start: 20170603, end: 20170606
  3. MAGNESIUM (GLYCINATE) [Concomitant]
  4. COENZYME Q10 [Concomitant]
     Active Substance: UBIDECARENONE
  5. OMEGA 3 FATTY ACID + VITAMIN D3 [Concomitant]
  6. GOLDENSEAL [Concomitant]
     Active Substance: HERBALS\HOMEOPATHICS\GOLDENSEAL

REACTIONS (12)
  - Myalgia [None]
  - Pain in extremity [None]
  - Raynaud^s phenomenon [None]
  - Weight bearing difficulty [None]
  - Erythema [None]
  - Tendon pain [None]
  - Mobility decreased [None]
  - Pain [None]
  - Neuralgia [None]
  - Disability [None]
  - Arthralgia [None]
  - Swelling [None]

NARRATIVE: CASE EVENT DATE: 20170605
